FAERS Safety Report 17485836 (Version 2)
Quarter: 2020Q2

REPORT INFORMATION
  Report Type: Spontaneous
  Country: US (occurrence: US)
  Receive Date: 20200303
  Receipt Date: 20200417
  Transmission Date: 20200713
  Serious: No
  Sender: FDA-Public Use
  Company Number: US-CELGENEUS-USA-20200210358

PATIENT
  Sex: Male
  Weight: 59.93 kg

DRUGS (4)
  1. RITUXAN [Concomitant]
     Active Substance: RITUXIMAB
     Dosage: 8 CYCLES
     Route: 065
     Dates: start: 20200221, end: 20200410
  2. RITUXAN [Concomitant]
     Active Substance: RITUXIMAB
     Indication: NON-HODGKIN^S LYMPHOMA
     Dosage: 8 CYCLES
     Route: 065
     Dates: start: 20180717, end: 20180910
  3. REVLIMID [Suspect]
     Active Substance: LENALIDOMIDE
     Indication: SPLENIC MARGINAL ZONE LYMPHOMA STAGE I
     Dosage: 20 MILLIGRAM
     Route: 048
     Dates: start: 20190801
  4. REVLIMID [Suspect]
     Active Substance: LENALIDOMIDE
     Indication: OFF LABEL USE
     Dosage: 10 MILLIGRAM
     Route: 048
     Dates: start: 201911, end: 20200215

REACTIONS (1)
  - Condition aggravated [Not Recovered/Not Resolved]
